FAERS Safety Report 14128127 (Version 1)
Quarter: 2017Q4

REPORT INFORMATION
  Report Type: Spontaneous
  Country: RO (occurrence: RO)
  Receive Date: 20171026
  Receipt Date: 20171026
  Transmission Date: 20180321
  Serious: Yes (Other)
  Sender: FDA-Public Use
  Company Number: RO-SUN PHARMACEUTICAL INDUSTRIES LTD-2017RR-153005

PATIENT
  Sex: Female

DRUGS (2)
  1. RIVANOL [Suspect]
     Active Substance: ETHACRIDINE LACTATE
     Indication: BREAST MASS
     Dosage: UNK
     Route: 061
  2. DICLOFENAC [Suspect]
     Active Substance: DICLOFENAC
     Indication: BREAST MASS
     Dosage: UNK
     Route: 061

REACTIONS (1)
  - Drug ineffective [Unknown]
